FAERS Safety Report 11420156 (Version 1)
Quarter: 2015Q3

REPORT INFORMATION
  Report Type: Spontaneous
  Country: US (occurrence: None)
  Receive Date: 20150825
  Receipt Date: 20150825
  Transmission Date: 20151125
  Serious: No
  Sender: FDA-Public Use
  Company Number: None

PATIENT
  Age: 65 Year
  Sex: Male
  Weight: 92.7 kg

DRUGS (1)
  1. INSULIN [Suspect]
     Active Substance: INSULIN NOS
     Indication: DIABETES MELLITUS
     Dosage: 6 UNITS  TID  SQ
     Route: 058
     Dates: start: 20150723, end: 20150804

REACTIONS (1)
  - Rash [None]

NARRATIVE: CASE EVENT DATE: 20150804
